FAERS Safety Report 7322003-X (Version None)
Quarter: 2011Q1

REPORT INFORMATION
  Report Type: 
  Country: None (occurrence: None)
  Receive Date: 20110228
  Receipt Date: 20110218
  Transmission Date: 20110831
  Serious: Yes (Other)
  Sender: FDA-Public Use
  Company Number: US-BAXTER-2011BH004058

PATIENT
  Age: 20 Month
  Sex: Female
  Weight: 9 kg

DRUGS (4)
  1. HEPARIN [Suspect]
     Route: 065
  2. ANTITHROMBIN III [Concomitant]
     Indication: ANTITHROMBIN III DECREASED
     Route: 065
  3. HEPARIN [Suspect]
     Dosage: DOSE UNIT:UNITS PER KILOGRAM
     Route: 065
  4. HEPARIN [Suspect]
     Indication: EXTRACORPOREAL MEMBRANE OXYGENATION
     Dosage: DOSE UNIT:UNITS PER KILOGRAM
     Route: 065

REACTIONS (3)
  - VENA CAVA THROMBOSIS [None]
  - PLEURAL EFFUSION [None]
  - HAEMORRHAGE [None]
